FAERS Safety Report 20006988 (Version 3)
Quarter: 2021Q4

REPORT INFORMATION
  Report Type: Report from Study
  Country: CO (occurrence: CO)
  Receive Date: 20211028
  Receipt Date: 20211201
  Transmission Date: 20220304
  Serious: Yes (Other)
  Sender: FDA-Public Use
  Company Number: CO-NOVARTISPH-PHHY2018CO083243

PATIENT
  Age: 54 Year
  Sex: Male
  Weight: 62 kg

DRUGS (6)
  1. GLIVEC [Suspect]
     Active Substance: IMATINIB MESYLATE
     Indication: Chronic myeloid leukaemia
     Dosage: 400 MG, QD
     Route: 048
     Dates: end: 20211009
  2. GLIVEC [Suspect]
     Active Substance: IMATINIB MESYLATE
     Dosage: 400 MG
     Route: 048
     Dates: start: 20211022
  3. GLIVEC [Suspect]
     Active Substance: IMATINIB MESYLATE
     Dosage: 1 DOSAGE FORM, Q48H
     Route: 048
  4. GLIVEC [Suspect]
     Active Substance: IMATINIB MESYLATE
     Dosage: 1 DOSAGE FORM, QD
     Route: 048
  5. XOLAIR [Suspect]
     Active Substance: OMALIZUMAB
     Indication: Asthma
     Dosage: 150 MG, QMO
     Route: 058
     Dates: end: 20211002
  6. METFORMIN [Concomitant]
     Active Substance: METFORMIN HYDROCHLORIDE
     Indication: Diabetes mellitus
     Dosage: 800 MG, TID
     Route: 048

REACTIONS (12)
  - Leprosy [Unknown]
  - Condition aggravated [Unknown]
  - Hypersensitivity [Unknown]
  - Off label use [Unknown]
  - Product availability issue [Unknown]
  - Urticaria [Unknown]
  - Skin lesion [Unknown]
  - Anxiety [Unknown]
  - Asthenia [Unknown]
  - Hyperhidrosis [Unknown]
  - Renal cyst [Unknown]
  - Hepatic cyst [Unknown]

NARRATIVE: CASE EVENT DATE: 20111109
